FAERS Safety Report 13552787 (Version 1)
Quarter: 2017Q2

REPORT INFORMATION
  Report Type: Spontaneous
  Country: US (occurrence: US)
  Receive Date: 20170516
  Receipt Date: 20170516
  Transmission Date: 20170830
  Serious: Yes (Hospitalization)
  Sender: FDA-Public Use
  Company Number: None

PATIENT
  Age: 72 Year
  Sex: Male

DRUGS (15)
  1. LUTEIN [Concomitant]
     Active Substance: LUTEIN
  2. SPIRONOLACTONE. [Concomitant]
     Active Substance: SPIRONOLACTONE
  3. ASA [Concomitant]
     Active Substance: ASPIRIN
  4. LETAIRIS [Concomitant]
     Active Substance: AMBRISENTAN
  5. TORSEMIDE. [Concomitant]
     Active Substance: TORSEMIDE
  6. SIMVASTATIN. [Concomitant]
     Active Substance: SIMVASTATIN
  7. ESCITALOPRAM [Concomitant]
     Active Substance: ESCITALOPRAM OXALATE
  8. PANTOPRAZOLE [Concomitant]
     Active Substance: PANTOPRAZOLE
  9. FISH OIL [Concomitant]
     Active Substance: FISH OIL
  10. ADCIRCA [Suspect]
     Active Substance: TADALAFIL
     Indication: PULMONARY ARTERIAL HYPERTENSION
     Dosage: QAM
     Route: 048
  11. MULTIVIT [Concomitant]
     Active Substance: VITAMINS
  12. POTASSIUM [Concomitant]
     Active Substance: POTASSIUM
  13. FLUCONAZOLE. [Concomitant]
     Active Substance: FLUCONAZOLE
  14. ARESTIN [Concomitant]
     Active Substance: MINOCYCLINE HYDROCHLORIDE
  15. HCTZ [Concomitant]
     Active Substance: HYDROCHLOROTHIAZIDE

REACTIONS (1)
  - Pulmonary hypertension [None]

NARRATIVE: CASE EVENT DATE: 20170502
